FAERS Safety Report 25034135 (Version 1)
Quarter: 2025Q1

REPORT INFORMATION
  Report Type: Report from Study
  Country: IL (occurrence: IL)
  Receive Date: 20250304
  Receipt Date: 20250304
  Transmission Date: 20250409
  Serious: Yes (Hospitalization)
  Sender: ABBVIE
  Company Number: IL-ABBVIE-6149646

PATIENT
  Age: 77 Year
  Sex: Male
  Weight: 84 kg

DRUGS (17)
  1. RISANKIZUMAB [Suspect]
     Active Substance: RISANKIZUMAB
     Indication: Psoriasis
     Route: 058
     Dates: start: 20230205
  2. RISANKIZUMAB [Suspect]
     Active Substance: RISANKIZUMAB
     Route: 058
     Dates: start: 20230328
  3. RISANKIZUMAB [Suspect]
     Active Substance: RISANKIZUMAB
     Route: 058
     Dates: start: 20240408
  4. RISANKIZUMAB [Suspect]
     Active Substance: RISANKIZUMAB
     Route: 058
     Dates: start: 20240701
  5. RISANKIZUMAB [Suspect]
     Active Substance: RISANKIZUMAB
     Route: 058
     Dates: start: 20230611
  6. RISANKIZUMAB [Suspect]
     Active Substance: RISANKIZUMAB
     Route: 058
     Dates: start: 20230831
  7. RISANKIZUMAB [Suspect]
     Active Substance: RISANKIZUMAB
     Route: 058
     Dates: start: 20221220
  8. RISANKIZUMAB [Suspect]
     Active Substance: RISANKIZUMAB
     Route: 058
     Dates: start: 20231122
  9. Alpha-d3 [Concomitant]
     Indication: Nephropathy
     Dosage: 0.25 MICROGRAM
     Route: 048
     Dates: start: 20100815
  10. CLOBETASOL [Concomitant]
     Active Substance: CLOBETASOL
     Indication: Psoriasis
     Route: 061
     Dates: start: 20180923
  11. Covid-19 vaccination [Concomitant]
     Indication: Product used for unknown indication
     Dates: start: 20210910, end: 20210910
  12. Covid-19 vaccination [Concomitant]
     Indication: Product used for unknown indication
     Dates: start: 20210305, end: 20210305
  13. LEVOTHYROXINE [Concomitant]
     Active Substance: LEVOTHYROXINE
     Indication: Autoimmune thyroiditis
     Dosage: 50 MICROGRAM
     Route: 048
     Dates: start: 20210211
  14. Fusid [Concomitant]
     Indication: Nephropathy
     Dosage: 40 MILLIGRAM
     Route: 048
     Dates: start: 20100427
  15. SIMVASTATIN [Concomitant]
     Active Substance: SIMVASTATIN
     Indication: Diabetes mellitus
     Dosage: 20 MILLIGRAM
     Route: 048
     Dates: start: 20081221
  16. ALLOPURINOL [Concomitant]
     Active Substance: ALLOPURINOL
     Indication: Gout
     Dosage: 100 MILLIGRAM
     Route: 048
     Dates: start: 20081028
  17. VENOFER [Concomitant]
     Active Substance: IRON SUCROSE
     Indication: Nephropathy
     Route: 042
     Dates: start: 20130508

REACTIONS (9)
  - Blood creatinine abnormal [Recovered/Resolved]
  - Device related infection [Recovered/Resolved]
  - Bacteraemia [Recovered/Resolved]
  - Bacteraemia [Recovered/Resolved]
  - Device related infection [Recovered/Resolved]
  - Abdominal pain [Recovered/Resolved]
  - Headache [Recovered/Resolved]
  - Asthenia [Recovered/Resolved]
  - Medical device site joint inflammation [Recovered/Resolved]

NARRATIVE: CASE EVENT DATE: 20230723
